FAERS Safety Report 12337552 (Version 1)
Quarter: 2016Q2

REPORT INFORMATION
  Report Type: Spontaneous
  Country: US (occurrence: None)
  Receive Date: 20160504
  Receipt Date: 20160504
  Transmission Date: 20160815
  Serious: Yes (Hospitalization)
  Sender: FDA-Public Use
  Company Number: None

PATIENT
  Age: 53 Year
  Sex: Male

DRUGS (6)
  1. MULTIVITAMIN [Concomitant]
     Active Substance: VITAMINS
  2. ADVIL [Concomitant]
     Active Substance: IBUPROFEN
  3. LEVEMIR [Concomitant]
     Active Substance: INSULIN DETEMIR
  4. HCTZ [Concomitant]
     Active Substance: HYDROCHLOROTHIAZIDE
  5. INVOKANA [Suspect]
     Active Substance: CANAGLIFLOZIN
     Dates: start: 20160101, end: 20160426
  6. AMLODIPINE-VALSARTAN [Suspect]
     Active Substance: AMLODIPINE\VALSARTAN

REACTIONS (1)
  - Diabetic ketoacidosis [None]

NARRATIVE: CASE EVENT DATE: 20160426
